FAERS Safety Report 16344366 (Version 1)
Quarter: 2019Q2

REPORT INFORMATION
  Report Type: Spontaneous
  Country: FR (occurrence: FR)
  Receive Date: 20190522
  Receipt Date: 20190522
  Transmission Date: 20190711
  Serious: Yes (Other)
  Sender: FDA-Public Use
  Company Number: FR-PFIZER INC-2019210773

PATIENT
  Age: 62 Year
  Sex: Male
  Weight: 84 kg

DRUGS (3)
  1. VFEND [Suspect]
     Active Substance: VORICONAZOLE
     Indication: ASPERGILLUS INFECTION
     Dosage: 60 MG, 1X/DAY
     Route: 042
     Dates: start: 20190219, end: 20190225
  2. LINEZOLIDE [Concomitant]
     Active Substance: LINEZOLID
     Dosage: UNK
  3. MEROPENEM ACTAVIS [Concomitant]
     Active Substance: MEROPENEM
     Dosage: UNK

REACTIONS (3)
  - Renal failure [Recovered/Resolved]
  - Hepatitis [Recovered/Resolved]
  - Dermatitis bullous [Not Recovered/Not Resolved]

NARRATIVE: CASE EVENT DATE: 201902
